FAERS Safety Report 8504428-X (Version None)
Quarter: 2012Q3

REPORT INFORMATION
  Report Type: 
  Country: None (occurrence: None)
  Receive Date: 20120711
  Receipt Date: 20120628
  Transmission Date: 20120928
  Serious: No
  Sender: FDA-Public Use
  Company Number: US-ASTRAZENECA-2012SE43732

PATIENT
  Age: 72 Year
  Sex: Female
  Weight: 48.1 kg

DRUGS (10)
  1. XOPENEX [Concomitant]
     Indication: ASTHMA
  2. SYMBICORT [Suspect]
     Dosage: 160/4.5MCG, 2 PUFFS UNKNOWN
     Route: 055
  3. SYMBICORT [Suspect]
     Dosage: 160/4.5MCG, 2 PUFFS UNKNOWN
     Route: 055
  4. PROAIR HFA [Concomitant]
     Indication: ASTHMA
  5. METOPROLOL TARTRATE [Concomitant]
     Indication: HYPERTENSION
  6. SYMBICORT [Suspect]
     Indication: BRONCHITIS
     Dosage: 80/4.5MCG, 2 PUFFS TWO TIMES A DAY
     Route: 055
     Dates: end: 20120620
  7. SYMBICORT [Suspect]
     Indication: ALLERGY TO CHEMICALS
     Dosage: 80/4.5MCG, 2 PUFFS TWO TIMES A DAY
     Route: 055
     Dates: end: 20120620
  8. SYMBICORT [Suspect]
     Dosage: 160/4.5MCG, 2 PUFFS UNKNOWN
     Route: 055
  9. SYMBICORT [Suspect]
     Indication: ASTHMA
     Dosage: 80/4.5MCG, 2 PUFFS TWO TIMES A DAY
     Route: 055
     Dates: end: 20120620
  10. FLUTICASONE PROPIONATE [Concomitant]

REACTIONS (4)
  - VISUAL IMPAIRMENT [None]
  - DRUG DOSE OMISSION [None]
  - MALAISE [None]
  - OFF LABEL USE [None]
